FAERS Safety Report 9434859 (Version 3)
Quarter: 2014Q1

REPORT INFORMATION
  Report Type: Report from Study
  Country: CA (occurrence: CA)
  Receive Date: 20130801
  Receipt Date: 20140117
  Transmission Date: 20141002
  Serious: Yes (Hospitalization, Other)
  Sender: FDA-Public Use
  Company Number: CA-UCBSA-092999

PATIENT
  Age: 61 Year
  Sex: Female
  Weight: 70.5 kg

DRUGS (6)
  1. CIMZIA [Suspect]
     Indication: RHEUMATOID ARTHRITIS
     Route: 058
     Dates: start: 20130213, end: 2013
  2. CIMZIA [Suspect]
     Indication: RHEUMATOID ARTHRITIS
     Route: 058
     Dates: start: 20130102, end: 20130130
  3. PREDNISONE [Suspect]
     Dosage: 6 MG
  4. RABEPRAZOLE [Concomitant]
     Dosage: UNKNOWN DOSE
  5. ADVIL [Concomitant]
     Dosage: UNKNOWN DOSE
  6. ELTROXIN [Concomitant]
     Dosage: UNKNOWN DOSE

REACTIONS (4)
  - Urinary tract infection [Recovered/Resolved]
  - Hypertension [Recovered/Resolved]
  - Tachycardia [Recovered/Resolved]
  - Tooth fracture [Recovered/Resolved]
